FAERS Safety Report 4333371-5 (Version None)
Quarter: 2004Q2

REPORT INFORMATION
  Report Type: 
  Country: None (occurrence: None)
  Receive Date: 20040401
  Receipt Date: 20040319
  Transmission Date: 20050107
  Serious: Yes (Hospitalization)
  Sender: FDA-Public Use
  Company Number: REM_00052_2004

PATIENT
  Age: 47 Year
  Sex: Male
  Weight: 81 kg

DRUGS (11)
  1. REMODULIN [Suspect]
     Indication: PULMONARY HYPERTENSION
     Dosage: 2.5 NG/KG/MIN DAILY SC
     Route: 058
     Dates: start: 20040218, end: 20040317
  2. DARVOCET-N 100 [Concomitant]
  3. IMITREX ^CERENEX^ [Concomitant]
  4. LASIX [Concomitant]
  5. XANAX [Concomitant]
  6. REMERON [Concomitant]
  7. FOLIC ACID [Concomitant]
  8. LISINOPRIL [Concomitant]
  9. NASACORT [Concomitant]
  10. OXYCONTIN [Concomitant]
  11. PROZAC [Concomitant]

REACTIONS (2)
  - INFUSION SITE PAIN [None]
  - INJECTION SITE CELLULITIS [None]
